FAERS Safety Report 9572046 (Version 1)
Quarter: 2013Q3

REPORT INFORMATION
  Report Type: Spontaneous
  Country: FR (occurrence: None)
  Receive Date: 20130927
  Receipt Date: 20130927
  Transmission Date: 20140515
  Serious: Yes (Hospitalization)
  Sender: FDA-Public Use
  Company Number: 1904110

PATIENT
  Age: 49 Year
  Sex: Female

DRUGS (3)
  1. CARBOPLATIN [Suspect]
     Indication: OVARIAN EPITHELIAL CANCER
     Route: 042
     Dates: end: 20120620
  2. ONDANSETRON [Concomitant]
  3. DEXAMETHASONE [Concomitant]

REACTIONS (2)
  - Thrombocytopenia [None]
  - Anaphylactic reaction [None]
